FAERS Safety Report 10538376 (Version 2)
Quarter: 2015Q1

REPORT INFORMATION
  Report Type: Spontaneous
  Country: CN (occurrence: CN)
  Receive Date: 20141023
  Receipt Date: 20150330
  Transmission Date: 20150720
  Serious: Yes (Death, Other)
  Sender: FDA-Public Use
  Company Number: CN-JNJFOC-20141010671

PATIENT

DRUGS (4)
  1. DOXORUBICIN HYDROCHLORIDE. [Suspect]
     Active Substance: DOXORUBICIN HYDROCHLORIDE
     Indication: OSTEOSARCOMA
     Dosage: DAYS 1-3 OF WEEK 2
     Route: 042
  2. IFOSFAMIDE. [Suspect]
     Active Substance: IFOSFAMIDE
     Indication: OSTEOSARCOMA
     Dosage: 2 G/M2 DAYS 1-5 OF WEEK 2
     Route: 065
  3. ADRIAMYCIN [Suspect]
     Active Substance: DOXORUBICIN HYDROCHLORIDE
     Indication: OSTEOSARCOMA
     Dosage: DAYS 1-3 OF WEEK 2
     Route: 042
  4. CISPLATIN. [Suspect]
     Active Substance: CISPLATIN
     Indication: OSTEOSARCOMA
     Dosage: ON DAY 1 OF WEEK 1
     Route: 065

REACTIONS (11)
  - Febrile neutropenia [Unknown]
  - Alopecia [Unknown]
  - Neoplasm progression [Fatal]
  - Alanine aminotransferase increased [Unknown]
  - Product use issue [Unknown]
  - Neutropenia [Unknown]
  - Nausea [Unknown]
  - Metastases to lung [Fatal]
  - Bone marrow failure [Unknown]
  - Vomiting [Unknown]
  - Thrombocytopenia [Unknown]
